FAERS Safety Report 7263456-5 (Version None)
Quarter: 2011Q1

REPORT INFORMATION
  Report Type: 
  Country: None (occurrence: None)
  Receive Date: 20110130
  Receipt Date: 20101108
  Transmission Date: 20110831
  Serious: No
  Sender: FDA-Public Use
  Company Number: US-ABBOTT-10P-163-0683944-00

PATIENT
  Age: 87 Year
  Sex: Female

DRUGS (12)
  1. LYRICA [Concomitant]
     Indication: PAIN
     Route: 048
  2. ADVAIR [Concomitant]
     Indication: DYSPNOEA
     Dosage: 100/50
  3. LIPITOR [Concomitant]
     Indication: BLOOD CHOLESTEROL INCREASED
     Route: 048
  4. OSCAL 500+D [Concomitant]
     Indication: PRODUCT USED FOR UNKNOWN INDICATION
     Route: 048
  5. FORTICAL [Concomitant]
     Indication: DYSPNOEA
     Route: 045
  6. HUMIRA [Suspect]
     Indication: PSORIASIS
     Route: 058
     Dates: start: 20100801
  7. DIOVAN [Concomitant]
     Indication: HYPERTENSION
     Route: 048
  8. LOPRESSOR [Concomitant]
     Indication: HYPERTENSION
     Route: 048
  9. HYDROCHLOROTHIAZIDE [Concomitant]
     Indication: FLUID RETENTION
     Dosage: 1/2 TABLET
     Route: 048
  10. CENTRUM [Concomitant]
     Indication: PRODUCT USED FOR UNKNOWN INDICATION
     Route: 048
  11. PRILOSEC [Concomitant]
     Indication: DYSPEPSIA
     Route: 048
  12. CELEBREX [Concomitant]
     Indication: PAIN
     Route: 048

REACTIONS (3)
  - GAIT DISTURBANCE [None]
  - PAIN IN EXTREMITY [None]
  - DIZZINESS [None]
